FAERS Safety Report 8427707-3 (Version None)
Quarter: 2012Q2

REPORT INFORMATION
  Report Type: 
  Country: None (occurrence: None)
  Receive Date: 20120611
  Receipt Date: 20120605
  Transmission Date: 20120825
  Serious: Yes (Death, Hospitalization)
  Sender: FDA-Public Use
  Company Number: JP-BAXTER-2012BAX004094

PATIENT
  Age: 86 Year
  Sex: Female
  Weight: 50 kg

DRUGS (2)
  1. FEIBA [Suspect]
     Indication: HAEMORRHAGE
  2. FEIBA [Suspect]
     Indication: ACQUIRED HAEMOPHILIA
     Dosage: 2 VIALS
     Route: 042
     Dates: start: 20120416, end: 20120418

REACTIONS (1)
  - HAEMORRHAGE [None]
